FAERS Safety Report 4789398-2 (Version None)
Quarter: 2005Q3

REPORT INFORMATION
  Report Type: 
  Country: None (occurrence: None)
  Receive Date: 20050929
  Receipt Date: 20050727
  Transmission Date: 20060218
  Serious: No
  Sender: FDA-Public Use
  Company Number: 05P-163-0306874-00

PATIENT
  Age: 48 Year
  Sex: Female
  Weight: 47.1741 kg

DRUGS (3)
  1. HUMIRA [Suspect]
     Indication: RHEUMATOID ARTHRITIS
     Dosage: 40 MG, 1 IN 2 WK, SUBCUTANEOUS
     Route: 058
     Dates: start: 20050601
  2. MULTI-VITAMINS [Concomitant]
  3. ALENDRONATE SODIUM [Concomitant]

REACTIONS (3)
  - ARTHRALGIA [None]
  - DRUG ADMINISTRATION ERROR [None]
  - JOINT SWELLING [None]
